FAERS Safety Report 23332861 (Version 2)
Quarter: 2024Q4

REPORT INFORMATION
  Report Type: Report from Study
  Country: CH (occurrence: DE)
  Receive Date: 20231222
  Receipt Date: 20241124
  Transmission Date: 20250114
  Serious: Yes (Death, Hospitalization)
  Sender: OPKO HEALTH
  Company Number: CH-OPKO PHARMACEUTICALS, LLC.-2023OPK00112

PATIENT
  Age: 64 Year
  Sex: Female
  Weight: 63 kg

DRUGS (10)
  1. CALCIFEDIOL [Suspect]
     Active Substance: CALCIFEDIOL
     Indication: Hyperparathyroidism secondary
     Dosage: 30 MCG, QD
     Route: 048
     Dates: start: 20230816, end: 20231129
  2. PROGRAF [Concomitant]
     Active Substance: TACROLIMUS
     Indication: Organ donor
     Dosage: 2 MG, BID
     Route: 048
     Dates: start: 1999, end: 2023
  3. PREDINISOLONA [Concomitant]
     Indication: Organ donor
     Dosage: 8 MG, QD
     Route: 048
     Dates: start: 1999, end: 2023
  4. RAMIPRIL [Concomitant]
     Active Substance: RAMIPRIL
     Indication: Hypertension
     Dosage: UNK
     Route: 048
     Dates: end: 2023
  5. TORSEMIDE [Concomitant]
     Active Substance: TORSEMIDE
     Indication: Hypertension
     Dosage: 15 MG, BID
     Route: 048
  6. BISOPROLOL [Concomitant]
     Active Substance: BISOPROLOL
     Indication: Hypertension
     Dosage: 5 MG, QD
     Route: 048
  7. PRAVASTATIN [Concomitant]
     Active Substance: PRAVASTATIN
     Indication: Hyperlipidaemia
  8. ACIMOL [ACECLOFENAC;PARACETAMOL] [Concomitant]
     Indication: Organ donor
     Dosage: 1500 MG, QD
     Route: 048
     Dates: start: 1999
  9. PANTOPRAZOLE SODIUM [Concomitant]
     Active Substance: PANTOPRAZOLE SODIUM
     Indication: Gastrointestinal disorder prophylaxis
     Dosage: 20 MG
     Route: 048
  10. SPIRIVA [Concomitant]
     Active Substance: TIOTROPIUM BROMIDE MONOHYDRATE
     Indication: Chronic obstructive pulmonary disease
     Dosage: 2.5 MCG, BID

REACTIONS (3)
  - COVID-19 pneumonia [Fatal]
  - Superinfection bacterial [Fatal]
  - Sepsis [Fatal]

NARRATIVE: CASE EVENT DATE: 20230101
